FAERS Safety Report 8095289-4 (Version None)
Quarter: 2012Q1

REPORT INFORMATION
  Report Type: 
  Country: None (occurrence: None)
  Receive Date: 20120129
  Receipt Date: 20111217
  Transmission Date: 20120608
  Serious: No
  Sender: FDA-Public Use
  Company Number: US-ABBOTT-11P-163-0884785-00

PATIENT
  Age: 77 Year
  Sex: Female

DRUGS (5)
  1. OMEPRAZOLE [Concomitant]
     Indication: GASTRIC HAEMORRHAGE
  2. IRON [Concomitant]
     Indication: ANAEMIA
     Dosage: INFUSIONS
  3. HUMIRA [Suspect]
     Indication: CROHN'S DISEASE
     Dates: start: 20111104
  4. LEVOTHYROXINE SODIUM [Concomitant]
     Indication: PRODUCT USED FOR UNKNOWN INDICATION
  5. AMLODIPINE [Concomitant]
     Indication: HYPERTENSION

REACTIONS (1)
  - PAIN [None]
